FAERS Safety Report 14387170 (Version 2)
Quarter: 2018Q3

REPORT INFORMATION
  Report Type: Spontaneous
  Country: US (occurrence: US)
  Receive Date: 20180115
  Receipt Date: 20180705
  Transmission Date: 20181010
  Serious: Yes (Other)
  Sender: FDA-Public Use
  Company Number: US-SA-2017SA169752

PATIENT
  Age: 54 Year
  Sex: Female
  Weight: 79.83 kg

DRUGS (9)
  1. LIPITOR [Concomitant]
     Active Substance: ATORVASTATIN CALCIUM
  2. FEMARA [Concomitant]
     Active Substance: LETROZOLE
  3. COD LIVER OIL [Concomitant]
     Active Substance: COD LIVER OIL
  4. TAXOTERE [Suspect]
     Active Substance: DOCETAXEL
     Indication: BREAST CANCER FEMALE
     Dosage: UNK UNK,QCY
     Route: 042
     Dates: start: 200610, end: 200610
  5. CALCIUM PHOSPHATE;CALCIUM SODIUM LACTATE;ERGOCALCIFEROL [Concomitant]
  6. TAXOTERE [Suspect]
     Active Substance: DOCETAXEL
     Dosage: UNK UNK,QCY
     Route: 042
     Dates: start: 20070425, end: 20070425
  7. ALEVE [Concomitant]
     Active Substance: NAPROXEN SODIUM
  8. ADRIAMYCIN [DOXORUBICIN] [Concomitant]
  9. CYCLOPHOSPHAMIDE. [Concomitant]
     Active Substance: CYCLOPHOSPHAMIDE

REACTIONS (2)
  - Psychological trauma [Unknown]
  - Alopecia [Recovering/Resolving]

NARRATIVE: CASE EVENT DATE: 20061101
